FAERS Safety Report 10264397 (Version 1)
Quarter: 2014Q2

REPORT INFORMATION
  Report Type: Report from Study
  Country: CA (occurrence: CA)
  Receive Date: 20140627
  Receipt Date: 20140627
  Transmission Date: 20141212
  Serious: Yes (Other)
  Sender: FDA-Public Use
  Company Number: CA-JNJFOC-20140614972

PATIENT
  Age: 42 Year
  Sex: Female
  Weight: 82 kg

DRUGS (5)
  1. REMICADE [Suspect]
     Indication: CROHN^S DISEASE
     Route: 042
  2. REMICADE [Suspect]
     Indication: CROHN^S DISEASE
     Route: 042
     Dates: start: 201401
  3. QUESTRAN [Concomitant]
     Route: 065
  4. PANTOLOC [Concomitant]
     Route: 065
  5. PREMARIN [Concomitant]
     Route: 065

REACTIONS (3)
  - Thyroid neoplasm [Unknown]
  - Small intestinal resection [Unknown]
  - Ear infection [Recovered/Resolved]
